FAERS Safety Report 4408091-9 (Version None)
Quarter: 2004Q3

REPORT INFORMATION
  Report Type: 
  Country: None (occurrence: None)
  Receive Date: 20040722
  Receipt Date: 20040715
  Transmission Date: 20050211
  Serious: Yes (Hospitalization)
  Sender: FDA-Public Use
  Company Number: 2004-BP-03808YA(3)

PATIENT
  Age: 77 Year
  Sex: Male

DRUGS (5)
  1. OMNIC CAPSULES (TAMSULOSIN) [Suspect]
     Indication: BENIGN PROSTATIC HYPERPLASIA
     Dosage: 0.4 MG (NR) PO
     Route: 048
     Dates: start: 20040301, end: 20040416
  2. OMNIC CAPSULES (TAMSULOSIN) [Suspect]
     Indication: PROSTATIC DISORDER
     Dosage: 0.4 MG (NR) PO
     Route: 048
     Dates: start: 20040301, end: 20040416
  3. OMNIC CAPSULES (TAMSULOSIN) [Suspect]
     Indication: BENIGN PROSTATIC HYPERPLASIA
     Dosage: 0.4 MG (NR) PO
     Route: 048
     Dates: start: 20040301, end: 20040416
  4. OMNIC CAPSULES (TAMSULOSIN) [Suspect]
     Indication: PROSTATIC DISORDER
     Dosage: 0.4 MG (NR) PO
     Route: 048
     Dates: start: 20040301, end: 20040416
  5. ASS 100 (ACETLSALICYLIC ACID) (NR) [Suspect]
     Indication: PROPHYLAXIS

REACTIONS (3)
  - ABDOMINAL PAIN [None]
  - DRUG INTERACTION [None]
  - HAEMATOCHEZIA [None]
